FAERS Safety Report 25821777 (Version 1)
Quarter: 2025Q3

REPORT INFORMATION
  Report Type: Spontaneous
  Country: US (occurrence: US)
  Receive Date: 20250919
  Receipt Date: 20250919
  Transmission Date: 20251020
  Serious: No
  Sender: CSL BEHRING
  Company Number: US-Vifor (International) Inc.-VIT-2017-12412

PATIENT
  Age: 55 Year
  Sex: Female

DRUGS (7)
  1. VELTASSA [Suspect]
     Active Substance: PATIROMER
     Indication: Hyperkalaemia
     Route: 048
     Dates: start: 20160804
  2. VELTASSA [Suspect]
     Active Substance: PATIROMER
     Dosage: 8.4,G,QD
     Route: 048
  3. PROGRAF [Concomitant]
     Active Substance: TACROLIMUS
  4. MYFORTIC [Concomitant]
     Active Substance: MYCOPHENOLATE SODIUM
  5. SYNTHROID [Concomitant]
     Active Substance: LEVOTHYROXINE SODIUM
  6. LASIX [Concomitant]
     Active Substance: FUROSEMIDE
  7. FOSAMAX [Concomitant]
     Active Substance: ALENDRONATE SODIUM

REACTIONS (10)
  - Malaise [Unknown]
  - Product colour issue [Unknown]
  - Product availability issue [Unknown]
  - Product solubility abnormal [Unknown]
  - Product packaging issue [Unknown]
  - Abdominal discomfort [Unknown]
  - Condition aggravated [Unknown]
  - Eating disorder [Unknown]
  - Vomiting [Not Recovered/Not Resolved]
  - Abdominal pain upper [Unknown]

NARRATIVE: CASE EVENT DATE: 20170101
